FAERS Safety Report 5430711-0 (Version None)
Quarter: 2007Q3

REPORT INFORMATION
  Report Type: 
  Country: None (occurrence: None)
  Receive Date: 20070830
  Receipt Date: 20070713
  Transmission Date: 20080115
  Serious: No
  Sender: FDA-Public Use
  Company Number: A0619062A

PATIENT
  Age: 50 Year
  Sex: Female

DRUGS (3)
  1. WELLBUTRIN XL [Suspect]
     Indication: PANIC ATTACK
     Dosage: 300MG PER DAY
     Route: 048
     Dates: start: 20060601
  2. PAXIL [Suspect]
     Indication: DRUG USE FOR UNKNOWN INDICATION
     Route: 048
  3. DIOVAN [Concomitant]

REACTIONS (14)
  - AFFECTIVE DISORDER [None]
  - AGITATION [None]
  - ANGER [None]
  - ASTHENIA [None]
  - CRYING [None]
  - DECREASED APPETITE [None]
  - DECREASED INTEREST [None]
  - DEPRESSION [None]
  - FATIGUE [None]
  - INCREASED APPETITE [None]
  - NICOTINE DEPENDENCE [None]
  - THERAPEUTIC RESPONSE UNEXPECTED [None]
  - WEIGHT DECREASED [None]
  - WEIGHT INCREASED [None]
